FAERS Safety Report 20751672 (Version 1)
Quarter: 2022Q2

REPORT INFORMATION
  Report Type: Spontaneous
  Country: BR (occurrence: BR)
  Receive Date: 20220426
  Receipt Date: 20220426
  Transmission Date: 20220721
  Serious: Yes (Other)
  Sender: FDA-Public Use
  Company Number: BR-NOVARTISPH-NVSC2022BR093978

PATIENT
  Sex: Female

DRUGS (1)
  1. TEGRETOL [Suspect]
     Active Substance: CARBAMAZEPINE
     Indication: Epilepsy
     Dosage: 400 MG, Q12H
     Route: 065
     Dates: start: 1998

REACTIONS (7)
  - Bipolar disorder [Unknown]
  - Mood altered [Unknown]
  - Aggression [Unknown]
  - Epilepsy [Unknown]
  - Fear [Unknown]
  - Movement disorder [Unknown]
  - Product supply issue [Unknown]
